FAERS Safety Report 8236822-9 (Version None)
Quarter: 2012Q1

REPORT INFORMATION
  Report Type: 
  Country: None (occurrence: None)
  Receive Date: 20120327
  Receipt Date: 20120316
  Transmission Date: 20120608
  Serious: Yes (Other)
  Sender: FDA-Public Use
  Company Number: US-SANOFI-AVENTIS-2012SA019353

PATIENT

DRUGS (1)
  1. ENOXAPARIN SODIUM [Suspect]
     Dosage: SUBCUTANEOUS, 4000 IU, POSTOPERATIVELY

REACTIONS (1)
  - ASPIRATION BRONCHIAL [None]
